FAERS Safety Report 10578382 (Version 1)
Quarter: 2014Q4

REPORT INFORMATION
  Report Type: Spontaneous
  Country: US (occurrence: None)
  Receive Date: 20141111
  Receipt Date: 20141111
  Transmission Date: 20150529
  Serious: Yes (Other)
  Sender: FDA-Public Use
  Company Number: None

PATIENT
  Age: 25 Year
  Sex: Female
  Weight: 40.82 kg

DRUGS (3)
  1. STEROID INHALER [Concomitant]
  2. NEBULIZER [Concomitant]
     Active Substance: UNSPECIFIED INGREDIENT
  3. PHENYLEPHRINE [Suspect]
     Active Substance: PHENYLEPHRINE\PHENYLEPHRINE HYDROCHLORIDE
     Indication: PRODUCT USED FOR UNKNOWN INDICATION
     Dosage: 1 TABLET PRN/AS NEEDED ORAL
     Route: 048

REACTIONS (4)
  - Bronchospasm [None]
  - Dizziness [None]
  - Vertigo [None]
  - Dyspnoea [None]

NARRATIVE: CASE EVENT DATE: 20141001
